FAERS Safety Report 5033601-0 (Version None)
Quarter: 2006Q2

REPORT INFORMATION
  Report Type: 
  Country: None (occurrence: None)
  Receive Date: 20060518
  Receipt Date: 20050825
  Transmission Date: 20061013
  Serious: Yes (Other)
  Sender: FDA-Public Use
  Company Number: 2005060920

PATIENT
  Age: 19 Year
  Sex: Female
  Weight: 113.3993 kg

DRUGS (3)
  1. DEPO-PROVERA [Suspect]
     Indication: CONTRACEPTION
     Dosage: SEE IMAGE
     Route: 030
     Dates: start: 20041019, end: 20041019
  2. DEPO-PROVERA [Suspect]
     Indication: CONTRACEPTION
     Dosage: SEE IMAGE
     Route: 030
     Dates: start: 20050114, end: 20050114
  3. DEPO-PROVERA [Suspect]

REACTIONS (1)
  - UNINTENDED PREGNANCY [None]
